FAERS Safety Report 14569756 (Version 5)
Quarter: 2018Q3

REPORT INFORMATION
  Report Type: Report from Study
  Country: US (occurrence: US)
  Receive Date: 20180224
  Receipt Date: 20180731
  Transmission Date: 20181010
  Serious: Yes (Hospitalization)
  Sender: FDA-Public Use
  Company Number: US-MALLINCKRODT-T201800291

PATIENT
  Sex: Female

DRUGS (9)
  1. POTASSIUM [Concomitant]
     Active Substance: POTASSIUM
     Indication: HYPERTENSION
     Dosage: 20 MG, BID (ONE TABLET, TWO TIMES A DAY)
     Route: 065
  2. LASIX [Concomitant]
     Active Substance: FUROSEMIDE
     Indication: HYPERTENSION
     Dosage: ONE TABLET ONCE A DAY
     Route: 065
  3. REPOSITORY CORTICOTROPIN INJECTION [Suspect]
     Active Substance: CORTICOTROPIN
     Indication: PROTEINURIA
     Dosage: 80 UNITS / 1 ML, EVERY 3 DAYS/EVERY 72 HOURS (MONDAY/WEDNESDAY/FRIDAY)
     Route: 058
     Dates: start: 20170308
  4. REPOSITORY CORTICOTROPIN INJECTION [Suspect]
     Active Substance: CORTICOTROPIN
     Indication: NEPHROTIC SYNDROME
     Dosage: 80 UNITS / 1 ML, (MONDAY/WEDNESDAY/FRIDAY)
     Route: 058
     Dates: end: 20180606
  5. ASPIRIN. [Concomitant]
     Active Substance: ASPIRIN
     Indication: HYPERTENSION
     Dosage: 325 MG, QD (ONE TABLET A DAY)
     Route: 065
  6. HUMALOG [Concomitant]
     Active Substance: INSULIN LISPRO
     Indication: DIABETES MELLITUS
     Dosage: 18 UNITS, WITH EACH MEAL (THREE TIMES A DAY)
     Route: 065
  7. LANTUS [Concomitant]
     Active Substance: INSULIN GLARGINE
     Indication: DIABETES MELLITUS
     Dosage: 30 UNIT, EVERY NIGHT
     Route: 065
  8. HYDRALAZINE [Concomitant]
     Active Substance: HYDRALAZINE HYDROCHLORIDE
     Indication: HYPERTENSION
     Dosage: 300 MG, TID (ONE TABLET, THREE TIMES A DAY)
     Route: 065
  9. GABAPENTIN. [Concomitant]
     Active Substance: GABAPENTIN
     Indication: NEUROPATHY PERIPHERAL
     Dosage: 800 MG, TID (ONE TABLET, THREE TIMES A DAY)
     Route: 065

REACTIONS (10)
  - Nausea [Recovering/Resolving]
  - Blood glucose increased [Recovering/Resolving]
  - Hypertension [Recovering/Resolving]
  - Abdominal pain upper [Recovering/Resolving]
  - Eating disorder [Recovering/Resolving]
  - Drug ineffective [Not Recovered/Not Resolved]
  - Diarrhoea [Recovering/Resolving]
  - Intestinal polyp [Unknown]
  - Drug dose omission [Unknown]
  - Dehydration [Recovering/Resolving]
